FAERS Safety Report 15554112 (Version 1)
Quarter: 2018Q4

REPORT INFORMATION
  Report Type: Spontaneous
  Country: US (occurrence: US)
  Receive Date: 20181026
  Receipt Date: 20181026
  Transmission Date: 20190205
  Serious: Yes (Hospitalization, Other)
  Sender: FDA-Public Use
  Company Number: US-CIPLA LTD.-2018US22048

PATIENT

DRUGS (33)
  1. SERTRALINE [Suspect]
     Active Substance: SERTRALINE HYDROCHLORIDE
     Dosage: 25 MG, DAILY
     Route: 065
  2. METHYLPHENIDATE. [Concomitant]
     Active Substance: METHYLPHENIDATE
     Dosage: 36 MG, QD (QAM) (DISCHARGE REGIMEN)
     Route: 065
  3. DULOXETINE. [Concomitant]
     Active Substance: DULOXETINE
     Dosage: UNK, GRADUALLY DISCONTINUED OVER 3 MONTHS IN 30 MG DECREMENTS
     Route: 065
  4. GABAPENTIN. [Suspect]
     Active Substance: GABAPENTIN
     Indication: ANXIETY DISORDER
     Dosage: 300 MG, BID
     Route: 065
  5. CLONAZEPAM. [Suspect]
     Active Substance: CLONAZEPAM
     Dosage: 1 MG, BID, PRN (DISCHARGE REGIMEN)
     Route: 065
  6. MELATONIN [Concomitant]
     Active Substance: MELATONIN
     Indication: DYSSOMNIA
     Dosage: 6 MG, UNK
     Route: 065
  7. MELATONIN [Concomitant]
     Active Substance: MELATONIN
     Dosage: 6 MG, AT BEDTIME
     Route: 065
  8. DULOXETINE. [Concomitant]
     Active Substance: DULOXETINE
     Dosage: 40 MG, PER DAY
     Route: 065
  9. ZOLPIDEM TARTRATE. [Suspect]
     Active Substance: ZOLPIDEM TARTRATE
     Indication: ANXIETY
     Dosage: 5 MG, NIGHTLY, PRN
     Route: 065
  10. CLONAZEPAM. [Suspect]
     Active Substance: CLONAZEPAM
     Indication: PANIC ATTACK
     Dosage: 1 MG, BID
     Route: 065
  11. CLONIDINE. [Concomitant]
     Active Substance: CLONIDINE
     Dosage: 0.1 MG, BID (DISCHARGE REGIMEN)
     Route: 065
  12. DULOXETINE. [Concomitant]
     Active Substance: DULOXETINE
     Dosage: 40 MG, QD (QAM)
     Route: 065
  13. SERTRALINE [Suspect]
     Active Substance: SERTRALINE HYDROCHLORIDE
     Dosage: 100 MG, PER DAY (TITRATED)
     Route: 065
  14. BUPROPION. [Suspect]
     Active Substance: BUPROPION
     Indication: MAJOR DEPRESSION
     Dosage: 150 MG, QD, QAM (EVERY MORNING) (EXTENDED RELEASE)
     Route: 065
  15. BUPROPION. [Suspect]
     Active Substance: BUPROPION
     Dosage: 150 MG, QD (QAM) EXTENDED RELEASE, FEW WEEKS
     Route: 065
  16. GABAPENTIN. [Suspect]
     Active Substance: GABAPENTIN
     Indication: INSOMNIA
     Dosage: 600 MG, BID
     Route: 065
  17. CLONAZEPAM. [Suspect]
     Active Substance: CLONAZEPAM
     Dosage: 0.5 MG, BID (DOSE REDUCED TO AS NEEDED BASIS)
     Route: 065
  18. HYDROXYZINE [Concomitant]
     Active Substance: HYDROXYZINE HYDROCHLORIDE
     Indication: ANXIETY DISORDER
     Dosage: 50 MG, BID (EVERY 12 HOURS)
     Route: 065
  19. SERTRALINE [Suspect]
     Active Substance: SERTRALINE HYDROCHLORIDE
     Dosage: 200 MG, PER DAY, TITRATED
     Route: 065
  20. SERTRALINE [Suspect]
     Active Substance: SERTRALINE HYDROCHLORIDE
     Dosage: 100 MG, DAILY (TITRATED)
     Route: 065
  21. CLONAZEPAM. [Suspect]
     Active Substance: CLONAZEPAM
     Dosage: 0.25 MG, BID
     Route: 065
  22. METHYLPHENIDATE. [Concomitant]
     Active Substance: METHYLPHENIDATE
     Indication: ATTENTION DEFICIT/HYPERACTIVITY DISORDER
     Dosage: UNK
     Route: 065
  23. DULOXETINE. [Concomitant]
     Active Substance: DULOXETINE
     Indication: PANIC ATTACK
     Dosage: 20 MG, QD (QAM)
     Route: 065
  24. DULOXETINE. [Concomitant]
     Active Substance: DULOXETINE
     Dosage: 90 MG, DAILY
     Route: 065
  25. SERTRALINE [Suspect]
     Active Substance: SERTRALINE HYDROCHLORIDE
     Dosage: 150 MG, DAILY (25 MG INCREMENTS TO 150 MG DAILY)
     Route: 065
  26. LORAZEPAM. [Concomitant]
     Active Substance: LORAZEPAM
     Indication: PANIC ATTACK
     Dosage: 1 MG, PER DAY, PRN (1 MG DAILY ON AN AS NEEDED BASIS)
     Route: 065
  27. DULOXETINE. [Concomitant]
     Active Substance: DULOXETINE
     Dosage: 90 MG, QD (QAM)
     Route: 065
  28. SERTRALINE [Suspect]
     Active Substance: SERTRALINE HYDROCHLORIDE
     Indication: PANIC ATTACK
     Dosage: 25 MG, UNK
     Route: 065
  29. ZOLPIDEM TARTRATE. [Suspect]
     Active Substance: ZOLPIDEM TARTRATE
     Indication: INSOMNIA
     Dosage: 5 MG, QD (QHS)
     Route: 065
  30. CLONIDINE. [Concomitant]
     Active Substance: CLONIDINE
     Indication: ATTENTION DEFICIT/HYPERACTIVITY DISORDER
     Dosage: 0.1 MG, BID
     Route: 065
  31. GABAPENTIN. [Suspect]
     Active Substance: GABAPENTIN
     Dosage: UNK, DECREASED
     Route: 065
  32. LISDEXAMFETAMINE [Suspect]
     Active Substance: LISDEXAMFETAMINE
     Indication: ATTENTION DEFICIT/HYPERACTIVITY DISORDER
     Dosage: 30 MG, DAILY
     Route: 065
  33. METHYLPHENIDATE. [Concomitant]
     Active Substance: METHYLPHENIDATE
     Dosage: 72 MG, QD (QAM)
     Route: 065

REACTIONS (8)
  - Electrocardiogram QT prolonged [Recovering/Resolving]
  - Sedation [Unknown]
  - Fatigue [Recovering/Resolving]
  - Suicidal ideation [Unknown]
  - Anxiety [Unknown]
  - Apathy [Recovering/Resolving]
  - Tremor [Unknown]
  - Major depression [Unknown]
